FAERS Safety Report 20770576 (Version 1)
Quarter: 2022Q2

REPORT INFORMATION
  Report Type: Spontaneous
  Country: FR (occurrence: FR)
  Receive Date: 20220429
  Receipt Date: 20220429
  Transmission Date: 20220721
  Serious: Yes (Hospitalization)
  Sender: FDA-Public Use
  Company Number: FR-JNJFOC-20220404157

PATIENT
  Age: 57 Year
  Sex: Female
  Weight: 159 kg

DRUGS (1)
  1. ECONAZOLE [Suspect]
     Active Substance: ECONAZOLE
     Indication: Skin ulcer
     Dosage: 1 DOSAGE FORM, QD
     Route: 003
     Dates: start: 20220303, end: 20220310

REACTIONS (1)
  - Rash papular [Recovering/Resolving]

NARRATIVE: CASE EVENT DATE: 20220307
